FAERS Safety Report 11693315 (Version 3)
Quarter: 2015Q4

REPORT INFORMATION
  Report Type: Report from Study
  Country: FI (occurrence: FI)
  Receive Date: 20151103
  Receipt Date: 20151202
  Transmission Date: 20160304
  Serious: Yes (Disabling, Other)
  Sender: FDA-Public Use
  Company Number: PHHY2015FI086131

PATIENT
  Age: 46 Year
  Sex: Female

DRUGS (13)
  1. NORFLEX [Concomitant]
     Active Substance: ORPHENADRINE CITRATE
     Indication: MUSCLE RELAXANT THERAPY
     Dosage: 100 MG, QD (ONCE DAILY, AS NEEDED)
     Route: 065
  2. BISOPROLOL [Concomitant]
     Active Substance: BISOPROLOL
     Dosage: 2.5 MG, BID
     Route: 065
  3. KLOTRIPTYL [Concomitant]
     Indication: SLEEP DISORDER
     Dosage: 2 DF, QD (IN THE EVENINGS)
     Route: 065
  4. DIUREX (AMILORIDE\HYDROCHLOROTHIAZIDE) [Concomitant]
     Active Substance: AMILORIDE HYDROCHLORIDE\HYDROCHLOROTHIAZIDE
     Indication: DIURETIC THERAPY
     Dosage: 1 DF, QD (2.5 MG AMILORIDE/25MG HYDROCHLOROTHIAZIDE)
     Route: 065
  5. BURANA [Concomitant]
     Active Substance: IBUPROFEN
     Indication: HEADACHE
  6. BISOPROLOL [Concomitant]
     Active Substance: BISOPROLOL
     Dosage: 2.5 MG, QD
     Route: 065
  7. BURANA [Concomitant]
     Active Substance: IBUPROFEN
     Indication: OSTEOARTHRITIS
     Dosage: 800 MG, PRN (3 TIMES PER DAY WHEN NEEDED)
     Route: 065
  8. TENOX (TEMAZEPAM) [Concomitant]
     Indication: SLEEP DISORDER
     Dosage: UNK, PRN
     Route: 065
  9. ARCOXIA [Concomitant]
     Active Substance: ETORICOXIB
     Indication: PAIN
     Route: 065
  10. ARCOXIA [Concomitant]
     Active Substance: ETORICOXIB
     Indication: OSTEOARTHRITIS
  11. BURANA [Concomitant]
     Active Substance: IBUPROFEN
     Indication: PAIN
  12. GILENYA [Suspect]
     Active Substance: FINGOLIMOD HYDROCHLORIDE
     Indication: MULTIPLE SCLEROSIS
     Dosage: 0.5 MG, QD
     Route: 048
  13. BISOPROLOL [Concomitant]
     Active Substance: BISOPROLOL
     Indication: ARRHYTHMIA
     Dosage: 2.5 MG, BID
     Route: 065

REACTIONS (16)
  - Genital herpes [Recovered/Resolved]
  - Skin papilloma [Recovered/Resolved]
  - Dyspnoea [Recovered/Resolved]
  - Iritis [Not Recovered/Not Resolved]
  - Cough [Recovered/Resolved]
  - Sinusitis [Recovered/Resolved]
  - Tracheitis [Recovered/Resolved]
  - Rhinitis [Recovered/Resolved]
  - Laryngitis [Recovered/Resolved]
  - Osteoarthritis [Recovering/Resolving]
  - Anogenital warts [Recovered/Resolved]
  - Bronchitis [Recovered/Resolved]
  - Immunosuppression [Not Recovered/Not Resolved]
  - Ear infection [Recovered/Resolved]
  - Pyrexia [Recovered/Resolved]
  - Nasopharyngitis [Recovered/Resolved]

NARRATIVE: CASE EVENT DATE: 2014
